FAERS Safety Report 8313584 (Version 3)
Quarter: 2012Q4

REPORT INFORMATION
  Report Type: Report from Study
  Country: BR (occurrence: BR)
  Receive Date: 20111228
  Receipt Date: 20121210
  Transmission Date: 20130627
  Serious: Yes (Hospitalization, Other)
  Sender: FDA-Public Use
  Company Number: BR-ROCHE-752973

PATIENT
  Age: 68 Year
  Sex: Female
  Weight: 58 kg

DRUGS (17)
  1. RITUXIMAB [Suspect]
     Indication: RHEUMATOID ARTHRITIS
     Dosage: DOSE: 500 MG/50 ML
     Route: 042
     Dates: start: 20100801, end: 20100801
  2. RITUXIMAB [Suspect]
     Dosage: DOSE: 500 MG/50 ML,
     Route: 042
     Dates: start: 20100815, end: 20100815
  3. RITUXIMAB [Suspect]
     Route: 042
     Dates: start: 20110221, end: 20110221
  4. RITUXIMAB [Suspect]
     Route: 042
     Dates: start: 20110311, end: 20110311
  5. RITUXIMAB [Suspect]
     Route: 042
     Dates: start: 20110812, end: 20110812
  6. OSTEONUTRI [Concomitant]
  7. METHOTREXATE [Concomitant]
     Indication: RHEUMATOID ARTHRITIS
     Dosage: 10 TABLET ON SUNDAYS
     Route: 065
  8. PREDSIM [Concomitant]
     Route: 065
  9. SERTRALINE HYDROCHLORIDE [Concomitant]
     Route: 065
  10. FOLIC ACID [Concomitant]
     Route: 065
  11. VITAMIN B12 [Concomitant]
  12. PROCIMAX [Concomitant]
     Dosage: FREQUENCY: HALF CAPSULE
     Route: 065
  13. CITONEURIN [Concomitant]
     Route: 065
  14. CHONDROITIN SULFATE/GLUCOSAMINE [Concomitant]
     Dosage: FREQUENCY: 3 CAPSULES
     Route: 065
  15. CALCORT [Concomitant]
     Dosage: FREQUENCY: 1 AMPOULE
     Route: 065
  16. MIOSAN [Concomitant]
     Dosage: FREQUENCY: 1 CAPSULE
     Route: 065
  17. ACETAMINOPHEN [Concomitant]
     Dosage: IT WAS REPORTED THAT PATIENT RECEIVED ACETAMINOPHEN AS PREMEDICATION
     Route: 065

REACTIONS (18)
  - Nervous system disorder [Recovered/Resolved]
  - Depressed mood [Not Recovered/Not Resolved]
  - Hospitalisation [Recovered/Resolved]
  - Fall [Recovered/Resolved]
  - Limb injury [Unknown]
  - Tension [Unknown]
  - Pyrexia [Recovered/Resolved]
  - Finger deformity [Not Recovered/Not Resolved]
  - Nausea [Not Recovered/Not Resolved]
  - Therapeutic response decreased [Unknown]
  - Pain in extremity [Not Recovered/Not Resolved]
  - Muscular weakness [Unknown]
  - Dysstasia [Unknown]
  - Dizziness [Not Recovered/Not Resolved]
  - Memory impairment [Recovered/Resolved]
  - Decubitus ulcer [Not Recovered/Not Resolved]
  - Gait disturbance [Not Recovered/Not Resolved]
  - Essential tremor [Not Recovered/Not Resolved]
